FAERS Safety Report 8822841 (Version 2)
Quarter: 2012Q4

REPORT INFORMATION
  Report Type: 
  Country: US (occurrence: US)
  Receive Date: 20121003
  Receipt Date: 20121004
  Transmission Date: 20130627
  Serious: Yes (Death, Other)
  Sender: FDA-Public Use
  Company Number: US-ROCHE-1130124

PATIENT
  Sex: Male

DRUGS (2)
  1. RITUXAN [Suspect]
     Indication: CHRONIC LYMPHOCYTIC LEUKAEMIA
     Dosage: 3 doses
     Route: 042
     Dates: start: 19990722, end: 19990812
  2. CIPRO [Concomitant]

REACTIONS (3)
  - Disease progression [Fatal]
  - Pyrexia [Unknown]
  - Pneumonitis [Unknown]
